FAERS Safety Report 8748567 (Version 2)
Quarter: 2012Q4

REPORT INFORMATION
  Report Type: 
  Country: US (occurrence: US)
  Receive Date: 20120827
  Receipt Date: 20120928
  Transmission Date: 20130627
  Serious: Yes (Disabling, Other)
  Sender: FDA-Public Use
  Company Number: US-PFIZER INC-2012207361

PATIENT
  Age: 68 Year
  Sex: Female
  Weight: 73.47 kg

DRUGS (7)
  1. LYRICA [Suspect]
     Indication: MUSCLE SPASMS
     Dosage: 150 mg, 2x/day
     Route: 048
     Dates: end: 201206
  2. LYRICA [Suspect]
     Indication: PAIN IN EXTREMITY
     Dosage: UNK
     Route: 048
     Dates: start: 201207, end: 2012
  3. LIPITOR [Suspect]
     Indication: BLOOD CHOLESTEROL INCREASED
     Dosage: UNK
     Route: 048
  4. GABAPENTIN [Suspect]
     Indication: PAIN IN EXTREMITY
     Dosage: 400 mg, 3x/day
     Dates: start: 201206, end: 201209
  5. GABAPENTIN [Suspect]
     Indication: MUSCLE SPASMS
  6. INSULIN [Concomitant]
     Indication: DIABETES MELLITUS
     Dosage: 14 IU in morning and 16 IU in afternoon
  7. METFORMIN [Concomitant]
     Indication: DIABETES MELLITUS
     Dosage: 1000 mg, 2x/day

REACTIONS (11)
  - Muscular weakness [Not Recovered/Not Resolved]
  - Muscle injury [Not Recovered/Not Resolved]
  - Narcolepsy [Unknown]
  - Fall [Unknown]
  - Walking aid user [Unknown]
  - Thyroxine increased [Unknown]
  - Skeletal injury [Unknown]
  - Pain in extremity [Not Recovered/Not Resolved]
  - Muscle spasms [Not Recovered/Not Resolved]
  - Screaming [Unknown]
  - Drug ineffective [Unknown]
